FAERS Safety Report 24844586 (Version 1)
Quarter: 2025Q1

REPORT INFORMATION
  Report Type: Other
  Country: CN (occurrence: CN)
  Receive Date: 20250115
  Receipt Date: 20250115
  Transmission Date: 20250409
  Serious: Yes (Hospitalization, Other)
  Sender: CREEKWOOD PHARMACEUTICALS LLC
  Company Number: CN-Creekwood Pharmaceuticals LLC-2169067

PATIENT
  Age: 45 Year
  Sex: Female

DRUGS (5)
  1. HYDROXYCHLOROQUINE SULFATE [Suspect]
     Active Substance: HYDROXYCHLOROQUINE SULFATE
     Indication: Dermatomyositis
  2. PREDNISONE [Suspect]
     Active Substance: PREDNISONE
  3. THALIDOMIDE [Concomitant]
     Active Substance: THALIDOMIDE
  4. METHYLPREDNISOLONE [Suspect]
     Active Substance: METHYLPREDNISOLONE
  5. METHOTREXATE [Suspect]
     Active Substance: METHOTREXATE

REACTIONS (3)
  - Progressive multifocal leukoencephalopathy [Recovered/Resolved]
  - Product use in unapproved indication [Unknown]
  - Human polyomavirus infection [Recovered/Resolved]
